FAERS Safety Report 10954099 (Version 1)
Quarter: 2015Q1

REPORT INFORMATION
  Report Type: Spontaneous
  Country: DE (occurrence: DE)
  Receive Date: 20150325
  Receipt Date: 20150325
  Transmission Date: 20150721
  Serious: Yes (Other)
  Sender: FDA-Public Use
  Company Number: PHHY2015DE030828

PATIENT
  Age: 56 Year
  Sex: Male

DRUGS (2)
  1. TEGRETAL [Suspect]
     Active Substance: CARBAMAZEPINE
     Dosage: 400 MG, QD
     Route: 065
     Dates: start: 2014
  2. TEGRETAL [Suspect]
     Active Substance: CARBAMAZEPINE
     Indication: EPILEPSY
     Dosage: 400 MG, BID
     Route: 065
     Dates: start: 1970, end: 2014

REACTIONS (3)
  - Glaucoma [Not Recovered/Not Resolved]
  - Calculus bladder [Recovering/Resolving]
  - Asthma [Not Recovered/Not Resolved]

NARRATIVE: CASE EVENT DATE: 1980
